FAERS Safety Report 7702310-9 (Version None)
Quarter: 2011Q3

REPORT INFORMATION
  Report Type: 
  Country: None (occurrence: None)
  Receive Date: 20110822
  Receipt Date: 20110816
  Transmission Date: 20111222
  Serious: Yes (Hospitalization, Other)
  Sender: FDA-Public Use
  Company Number: US-PFIZER INC-2011188404

PATIENT
  Sex: Male
  Weight: 83.9 kg

DRUGS (11)
  1. LANTUS [Concomitant]
     Dosage: 27 IU, QHS
  2. SIROLIMUS [Suspect]
     Indication: RENAL TRANSPLANT
     Dosage: 4 MG, 1X/DAY
     Route: 048
     Dates: start: 20100724
  3. METOPROLOL [Concomitant]
     Dosage: 50 MG, 2X/DAY
  4. PREDNISONE [Concomitant]
     Dosage: 5 MG, 1X/DAY
     Route: 048
  5. GLUCOTROL [Concomitant]
     Dosage: 5 MG, 2X/DAY
  6. REGULAR INSULIN [Concomitant]
     Dosage: SLIDING SCALE Q AC
  7. SIROLIMUS [Suspect]
     Indication: IMMUNOSUPPRESSION
  8. CELLCEPT [Concomitant]
     Dosage: 500 MG, Q 12 HOURS
  9. AMLODIPINE [Concomitant]
     Dosage: 10 MG, 1X/DAY
     Route: 048
  10. NEXIUM [Concomitant]
     Dosage: 40 MG, 1X/DAY
     Route: 048
  11. ACETYLSALICYLIC ACID [Concomitant]
     Dosage: 81 MG, 1X/DAY
     Route: 048

REACTIONS (1)
  - AZOTAEMIA [None]
